FAERS Safety Report 4937120-9 (Version None)
Quarter: 2006Q1

REPORT INFORMATION
  Report Type: 
  Country: None (occurrence: None)
  Receive Date: 20060302
  Receipt Date: 20060227
  Transmission Date: 20060701
  Serious: Yes (Death)
  Sender: FDA-Public Use
  Company Number: S06-CAN-00782-01

PATIENT
  Age: 78 Year
  Sex: Male

DRUGS (5)
  1. CELEXA [Suspect]
     Indication: DEPRESSION
     Dosage: 60 MG QD PO
     Route: 048
  2. METFORMIN [Concomitant]
  3. GLYBURIDE (GLIBENCLAMIDE) (GLYBURIDE) [Concomitant]
  4. DONEPEZIL HCL [Concomitant]
  5. SIMVASTATIN [Concomitant]

REACTIONS (1)
  - PRESCRIBED OVERDOSE [None]
